FAERS Safety Report 9489239 (Version 1)
Quarter: 2013Q3

REPORT INFORMATION
  Report Type: Spontaneous
  Country: US (occurrence: US)
  Receive Date: 20130725
  Receipt Date: 20130725
  Transmission Date: 20140515
  Serious: Yes (Hospitalization)
  Sender: FDA-Public Use
  Company Number: US-GLAXOSMITHKLINE-A0996441A

PATIENT
  Age: 67 Year
  Sex: Female
  Weight: 81.8 kg

DRUGS (1)
  1. AVANDIA [Suspect]
     Indication: DIABETES MELLITUS
     Dosage: 8MG PER DAY
     Route: 048
     Dates: start: 20031003, end: 20070612

REACTIONS (7)
  - Macular oedema [Unknown]
  - Radius fracture [Unknown]
  - Abasia [Unknown]
  - Coronary artery disease [Unknown]
  - Headache [Unknown]
  - Epistaxis [Unknown]
  - Malaise [Unknown]
